FAERS Safety Report 9270963 (Version 1)
Quarter: 2013Q2

REPORT INFORMATION
  Report Type: Spontaneous
  Country: US (occurrence: US)
  Receive Date: 20130506
  Receipt Date: 20130506
  Transmission Date: 20140414
  Serious: No
  Sender: FDA-Public Use
  Company Number: US-009507513-1304USA017291

PATIENT
  Age: 27 Year
  Sex: Female

DRUGS (1)
  1. NUVARING [Suspect]
     Indication: CONTRACEPTION
     Dosage: 3 WEEKS ON, 1 WEEK OUT, 1 RING
     Route: 067
     Dates: start: 201004

REACTIONS (3)
  - Pelvic pain [Unknown]
  - Mood swings [Unknown]
  - Incorrect drug administration duration [Unknown]
